FAERS Safety Report 17419810 (Version 1)
Quarter: 2020Q1

REPORT INFORMATION
  Report Type: Spontaneous
  Country: US (occurrence: US)
  Receive Date: 20200214
  Receipt Date: 20200214
  Transmission Date: 20200409
  Serious: Yes (Other)
  Sender: FDA-Public Use
  Company Number: US-PFIZER INC-2020064747

PATIENT
  Age: 70 Year
  Sex: Female
  Weight: 36.29 kg

DRUGS (1)
  1. CHANTIX [Suspect]
     Active Substance: VARENICLINE TARTRATE
     Indication: SMOKING CESSATION THERAPY
     Dosage: 2 MG, 2X/DAY
     Route: 048
     Dates: start: 201912, end: 202002

REACTIONS (4)
  - Lung disorder [Unknown]
  - Condition aggravated [Unknown]
  - Tobacco user [Unknown]
  - Off label use [Unknown]

NARRATIVE: CASE EVENT DATE: 201912
